FAERS Safety Report 4712647-3 (Version None)
Quarter: 2005Q3

REPORT INFORMATION
  Report Type: 
  Country: None (occurrence: None)
  Receive Date: 20050711
  Receipt Date: 20050701
  Transmission Date: 20060218
  Serious: Yes (Hospitalization, Other)
  Sender: FDA-Public Use
  Company Number: KII-2005-0017314

PATIENT
  Age: 42 Year
  Sex: Female

DRUGS (4)
  1. OXYCONTIN [Suspect]
     Dosage: ORAL
     Route: 048
  2. BENZODIAZEPINE DERIVATIVES [Suspect]
     Dosage: ORAL
     Route: 048
  3. OTHER HYPNOTICS AND SEDATIVES [Suspect]
     Dosage: ORAL
     Route: 048
  4. ANTIDEPRESSANT [Suspect]
     Dosage: ORAL
     Route: 048

REACTIONS (9)
  - ASPIRATION [None]
  - HEAD INJURY [None]
  - HYPERVENTILATION [None]
  - HYPOXIA [None]
  - INCOHERENT [None]
  - INTENTIONAL MISUSE [None]
  - MULTIPLE DRUG OVERDOSE [None]
  - SUICIDE ATTEMPT [None]
  - VOMITING [None]
